FAERS Safety Report 7384801-6 (Version None)
Quarter: 2011Q1

REPORT INFORMATION
  Report Type: 
  Country: None (occurrence: None)
  Receive Date: 20110330
  Receipt Date: 20110324
  Transmission Date: 20110831
  Serious: Yes (Death, Other)
  Sender: FDA-Public Use
  Company Number: PL-GENZYME-FLUD-1000914

PATIENT

DRUGS (2)
  1. CYCLOPHOSPHAMIDE [Suspect]
     Indication: CHRONIC LYMPHOCYTIC LEUKAEMIA
     Dosage: 205 MG/M2, QD FOR THREE DAYS EVERY 28 DAYS
     Route: 042
  2. FLUDARA [Suspect]
     Indication: CHRONIC LYMPHOCYTIC LEUKAEMIA
     Dosage: 25 MG/M2, QD FOR 3 DAYS EVERY 28 DAYS
     Route: 042

REACTIONS (10)
  - THROMBOCYTOPENIA [None]
  - DEATH [None]
  - FEBRILE NEUTROPENIA [None]
  - ANAEMIA [None]
  - GRANULOCYTOPENIA [None]
  - PANCYTOPENIA [None]
  - INFUSION RELATED REACTION [None]
  - HEPATITIS B [None]
  - PNEUMONIA [None]
  - NEUTROPENIA [None]
